FAERS Safety Report 7894036-6 (Version None)
Quarter: 2011Q4

REPORT INFORMATION
  Report Type: 
  Country: None (occurrence: None)
  Receive Date: 20111104
  Receipt Date: 20111021
  Transmission Date: 20120403
  Serious: Yes (Other)
  Sender: FDA-Public Use
  Company Number: FR-UCBSA-044187

PATIENT
  Age: 69 Year
  Sex: Male

DRUGS (3)
  1. XYZAL [Suspect]
     Indication: HYPERSENSITIVITY
     Dosage: 1 TABLET SINGLE INTAKE
     Route: 048
     Dates: start: 20110706, end: 20110706
  2. CYCLOPHOSPHAMIDE [Concomitant]
     Indication: CHRONIC LYMPHOCYTIC LEUKAEMIA
     Dates: start: 20110401
  3. KIOVIG [Suspect]
     Indication: IMMUNODEFICIENCY COMMON VARIABLE
     Dosage: 20 G DAILY
     Route: 042
     Dates: start: 20110601, end: 20110606

REACTIONS (4)
  - TACHYCARDIA [None]
  - HYPERTENSION [None]
  - CYANOSIS [None]
  - PYREXIA [None]
